FAERS Safety Report 7676779-2 (Version None)
Quarter: 2011Q3

REPORT INFORMATION
  Report Type: 
  Country: None (occurrence: None)
  Receive Date: 20110811
  Receipt Date: 20110802
  Transmission Date: 20111222
  Serious: Yes (Hospitalization)
  Sender: FDA-Public Use
  Company Number: GB-SANOFI-AVENTIS-2011SA049720

PATIENT
  Age: 61 Year
  Sex: Female

DRUGS (5)
  1. LEFLUNOMIDE [Suspect]
     Indication: RHEUMATOID ARTHRITIS
     Route: 048
     Dates: start: 20110318, end: 20110606
  2. ACETAMINOPHEN AND TRAMADOL HCL [Concomitant]
     Route: 048
     Dates: start: 20060101
  3. METHOTREXATE [Interacting]
     Indication: RHEUMATOID ARTHRITIS
     Route: 048
     Dates: start: 19990423, end: 20110612
  4. OMEPRAZOLE [Concomitant]
     Route: 048
     Dates: start: 20100101
  5. NAPROXEN [Concomitant]
     Route: 048
     Dates: start: 20100101

REACTIONS (2)
  - PNEUMONITIS [None]
  - DRUG INTERACTION [None]
